FAERS Safety Report 18172158 (Version 1)
Quarter: 2020Q3

REPORT INFORMATION
  Report Type: Spontaneous
  Country: GR (occurrence: GR)
  Receive Date: 20200819
  Receipt Date: 20200819
  Transmission Date: 20201103
  Serious: Yes (Other)
  Sender: FDA-Public Use
  Company Number: GR-PFIZER INC-2020318367

PATIENT
  Age: 71 Year
  Sex: Male

DRUGS (3)
  1. LYRICA [Suspect]
     Active Substance: PREGABALIN
     Dosage: 75 MG, 1X/DAY
     Route: 048
     Dates: start: 202008, end: 20200814
  2. LYRICA [Suspect]
     Active Substance: PREGABALIN
     Indication: SCIATICA
     Dosage: 75 MG, 2X/DAY
     Route: 048
     Dates: start: 202008, end: 202008
  3. LYRICA [Suspect]
     Active Substance: PREGABALIN
     Indication: BACK PAIN
     Dosage: 75 MG, 1X/DAY
     Route: 048
     Dates: start: 20200804, end: 202008

REACTIONS (8)
  - Peripheral swelling [Unknown]
  - Angioedema [Recovered/Resolved]
  - Mouth swelling [Recovered/Resolved]
  - Pruritus [Recovering/Resolving]
  - Rash pustular [Recovering/Resolving]
  - Erythema [Unknown]
  - Hypersensitivity [Unknown]
  - Lip swelling [Recovered/Resolved]

NARRATIVE: CASE EVENT DATE: 202008
